FAERS Safety Report 19661630 (Version 1)
Quarter: 2021Q3

REPORT INFORMATION
  Report Type: Spontaneous
  Country: CN (occurrence: CN)
  Receive Date: 20210805
  Receipt Date: 20210805
  Transmission Date: 20211014
  Serious: Yes (Hospitalization)
  Sender: FDA-Public Use
  Company Number: CN-FRESENIUS KABI-FK202107799

PATIENT
  Age: 81 Year
  Sex: Male
  Weight: 65 kg

DRUGS (6)
  1. LIPOVENOES MCT 20% [Suspect]
     Active Substance: EGG PHOSPHOLIPIDS\GLYCERIN\MEDIUM-CHAIN TRIGLYCERIDES\SOYBEAN OIL
     Indication: NUTRITIONAL SUPPLEMENTATION
     Dosage: FORM OF ADMIN. WAS REPORTED AS INJECTION IN THE SOURCE.
     Route: 041
     Dates: start: 20210717, end: 20210718
  2. PIRACETAM [Concomitant]
     Active Substance: PIRACETAM
     Indication: SYMPTOMATIC TREATMENT
     Route: 041
     Dates: start: 202107
  3. NIMODIPINE. [Concomitant]
     Active Substance: NIMODIPINE
     Indication: SYMPTOMATIC TREATMENT
     Route: 041
     Dates: start: 202107
  4. CYSTEINE HYDROCHLORIDE/GLYCINE/ALANINE/SERINE/ASPARTIC ACID/TYROSINE/LEUCINE/METHIONINE/PHENYLALANIN [Concomitant]
     Indication: NUTRITIONAL SUPPLEMENTATION
     Route: 041
     Dates: start: 20210717, end: 20210717
  5. GLYCEROL\FRUCTOSE\SODIUM CHLORIDE [Concomitant]
     Active Substance: FRUCTOSE\GLYCERIN\SODIUM CHLORIDE
     Indication: SYMPTOMATIC TREATMENT
     Route: 041
     Dates: start: 202107
  6. VALPROATE SODIUM. [Concomitant]
     Active Substance: VALPROATE SODIUM
     Indication: SYMPTOMATIC TREATMENT
     Route: 041
     Dates: start: 202107

REACTIONS (5)
  - Feeling cold [Recovering/Resolving]
  - Chills [Recovered/Resolved]
  - Tachycardia [Recovering/Resolving]
  - Chest discomfort [Recovering/Resolving]
  - Body temperature increased [Recovering/Resolving]

NARRATIVE: CASE EVENT DATE: 20210718
